FAERS Safety Report 16478986 (Version 1)
Quarter: 2019Q2

REPORT INFORMATION
  Report Type: Spontaneous
  Country: DE (occurrence: DE)
  Receive Date: 20190626
  Receipt Date: 20190626
  Transmission Date: 20190711
  Serious: Yes (Life-Threatening, Hospitalization)
  Sender: FDA-Public Use
  Company Number: DE-MYLANLABS-2019M1057749

PATIENT
  Age: 47 Year
  Sex: Male

DRUGS (2)
  1. KISPLYX [Suspect]
     Active Substance: LENVATINIB
     Indication: METASTATIC RENAL CELL CARCINOMA
     Dosage: UNK
     Route: 065
  2. EVEROLIMUS. [Suspect]
     Active Substance: EVEROLIMUS
     Indication: METASTATIC RENAL CELL CARCINOMA
     Dosage: UNK
     Route: 065

REACTIONS (6)
  - Cytokine abnormal [Unknown]
  - General physical health deterioration [Unknown]
  - Pneumonitis [Unknown]
  - Pneumonia fungal [Unknown]
  - Fatigue [Unknown]
  - Decreased appetite [Unknown]
